FAERS Safety Report 16920145 (Version 1)
Quarter: 2019Q4

REPORT INFORMATION
  Report Type: Spontaneous
  Country: US (occurrence: US)
  Receive Date: 20191015
  Receipt Date: 20191015
  Transmission Date: 20200122
  Serious: No
  Sender: FDA-Public Use
  Company Number: US-LANNETT COMPANY, INC.-US-2018LAN004639

PATIENT

DRUGS (1)
  1. BUTALBITAL, ACETAMINOPHEN, AND CAFFEINE [Suspect]
     Active Substance: ACETAMINOPHEN\BUTALBITAL\CAFFEINE
     Indication: HEADACHE
     Dosage: 1 TABLET A DAY (1 DF, QD)
     Route: 048
     Dates: start: 20181216, end: 20181218

REACTIONS (1)
  - Feeling drunk [Unknown]

NARRATIVE: CASE EVENT DATE: 20181218
